FAERS Safety Report 25254734 (Version 1)
Quarter: 2025Q2

REPORT INFORMATION
  Report Type: Spontaneous
  Country: US (occurrence: None)
  Receive Date: 20250429
  Receipt Date: 20250429
  Transmission Date: 20250717
  Serious: No
  Sender: FDA-CTU
  Company Number: None

PATIENT
  Age: 63 Year
  Sex: Female
  Weight: 62.6 kg

DRUGS (1)
  1. RINVOQ [Suspect]
     Active Substance: UPADACITINIB
     Indication: Spondyloarthropathy
     Dosage: FREQUENCY : DAILY;?
     Route: 048
     Dates: start: 202411

REACTIONS (1)
  - Nasopharyngitis [None]
